FAERS Safety Report 5287080-9 (Version None)
Quarter: 2007Q1

REPORT INFORMATION
  Report Type: 
  Country: None (occurrence: None)
  Receive Date: 20070330
  Receipt Date: 20070321
  Transmission Date: 20070707
  Serious: Yes (Other)
  Sender: FDA-Public Use
  Company Number: 238617

PATIENT
  Age: 58 Year
  Sex: Male
  Weight: 79.8 kg

DRUGS (1)
  1. RAPTIVA [Suspect]
     Indication: PSORIASIS
     Dosage: 80 MG, 1/WEEK, SUBCUTANEOUS
     Route: 058
     Dates: start: 20050510, end: 20061222

REACTIONS (1)
  - BLADDER CANCER [None]
